FAERS Safety Report 7054661-1 (Version None)
Quarter: 2010Q4

REPORT INFORMATION
  Report Type: 
  Country: None (occurrence: None)
  Receive Date: 20101020
  Receipt Date: 20101011
  Transmission Date: 20110411
  Serious: Yes (Hospitalization, Other)
  Sender: FDA-Public Use
  Company Number: US-PFIZER INC-2010129546

PATIENT
  Sex: Female
  Weight: 49 kg

DRUGS (10)
  1. LIPITOR [Suspect]
     Indication: ARTERIAL STENT INSERTION
     Dosage: 10 MG, 1X/DAY
     Route: 048
     Dates: start: 20060101
  2. PLAVIX [Concomitant]
     Indication: STENT PLACEMENT
     Dosage: 75 MG, 1X/DAY
  3. NADOLOL [Concomitant]
     Indication: MYOCARDIAL INFARCTION
     Dosage: 40 MG, 2X/DAY
  4. ISOSORBIDE [Concomitant]
     Indication: MYOCARDIAL INFARCTION
     Dosage: 60 MG, 1X/DAY
  5. NITROGLYCERIN [Concomitant]
     Indication: MYOCARDIAL INFARCTION
     Dosage: UNK
  6. ALPRAZOLAM [Concomitant]
     Dosage: UNK
  7. PRED FORTE [Concomitant]
     Dosage: 4 DROPS IN RIGHT EYE AND ONE IN LEFT EYE ONCE A DAY
     Route: 047
  8. FLAREX [Concomitant]
     Dosage: RIGHT EYE ONCE A DAY
     Route: 047
  9. GATIFLOXACIN [Concomitant]
     Dosage: UNK
  10. EPINASTINE [Concomitant]
     Dosage: UNK

REACTIONS (8)
  - BODY HEIGHT DECREASED [None]
  - CHEST PAIN [None]
  - CORNEAL OPERATION [None]
  - EAR PAIN [None]
  - MUSCLE SPASMS [None]
  - MYALGIA [None]
  - RENAL PAIN [None]
  - WRONG TECHNIQUE IN DRUG USAGE PROCESS [None]
